FAERS Safety Report 23618594 (Version 1)
Quarter: 2024Q1

REPORT INFORMATION
  Report Type: Spontaneous
  Country: US (occurrence: None)
  Receive Date: 20240311
  Receipt Date: 20240311
  Transmission Date: 20240410
  Serious: Yes (Life-Threatening, Disabling, Other)
  Sender: FDA-Public Use
  Company Number: None

PATIENT
  Age: 30 Year
  Sex: Male
  Weight: 72 kg

DRUGS (1)
  1. MONTELUKAST [Suspect]
     Active Substance: MONTELUKAST SODIUM
     Indication: Asthma
     Dates: start: 20180318, end: 20210601

REACTIONS (14)
  - Adverse drug reaction [None]
  - Psychotic disorder [None]
  - Sleep disorder [None]
  - Aggression [None]
  - Bipolar disorder [None]
  - Frustration tolerance decreased [None]
  - Anger [None]
  - Anxiety [None]
  - Hallucination, auditory [None]
  - Intentional self-injury [None]
  - Suicidal ideation [None]
  - Depression [None]
  - Tremor [None]
  - Pain [None]

NARRATIVE: CASE EVENT DATE: 20180318
